FAERS Safety Report 4430226-2 (Version None)
Quarter: 2004Q3

REPORT INFORMATION
  Report Type: 
  Country: None (occurrence: None)
  Receive Date: 20040817
  Receipt Date: 20040803
  Transmission Date: 20050211
  Serious: Yes (Hospitalization)
  Sender: FDA-Public Use
  Company Number: 2004-BP-06480BR

PATIENT
  Age: 76 Year
  Sex: Female

DRUGS (3)
  1. SPIRIVA [Suspect]
     Indication: CHRONIC OBSTRUCTIVE AIRWAYS DISEASE
     Dosage: 18 MCG
     Route: 055
  2. NORTRIPTILINA [Suspect]
     Indication: DEPRESSION
  3. METILPREDNISOLONA [Concomitant]

REACTIONS (1)
  - ILEUS PARALYTIC [None]
